FAERS Safety Report 9094289 (Version 1)
Quarter: 2013Q1

REPORT INFORMATION
  Report Type: Spontaneous
  Country: US (occurrence: None)
  Receive Date: 20130122
  Receipt Date: 20130122
  Transmission Date: 20140127
  Serious: Yes (Death)
  Sender: FDA-Public Use
  Company Number: 2013POI058000054

PATIENT
  Sex: 0

DRUGS (3)
  1. OXYCODONE HCL [Suspect]
     Dates: start: 2011
  2. OXYMORPHONE [Suspect]
     Dates: start: 2011
  3. HYDROCODONE [Suspect]
     Dates: start: 2011

REACTIONS (1)
  - Death [None]
